FAERS Safety Report 12554226 (Version 1)
Quarter: 2016Q3

REPORT INFORMATION
  Report Type: Spontaneous
  Country: MX (occurrence: MX)
  Receive Date: 20160713
  Receipt Date: 20160713
  Transmission Date: 20161109
  Serious: Yes (Hospitalization)
  Sender: FDA-Public Use
  Company Number: MX-SA-2016SA127722

PATIENT
  Age: 71 Year
  Sex: Male
  Weight: 83 kg

DRUGS (1)
  1. COAPROVEL [Suspect]
     Active Substance: HYDROCHLOROTHIAZIDE\IRBESARTAN
     Indication: HYPERTENSION
     Dosage: 150 MG IRBESARTAN+ 12.5 MG HYDROCHLOROTHIAZIDE
     Route: 048
     Dates: start: 2013, end: 201411

REACTIONS (1)
  - Prostatic disorder [Recovered/Resolved]

NARRATIVE: CASE EVENT DATE: 201411
